FAERS Safety Report 17318002 (Version 1)
Quarter: 2020Q1

REPORT INFORMATION
  Report Type: Spontaneous
  Country: US (occurrence: US)
  Receive Date: 20200124
  Receipt Date: 20200124
  Transmission Date: 20200409
  Serious: No
  Sender: FDA-Public Use
  Company Number: US-ANIPHARMA-2019-US-018661

PATIENT
  Age: 78 Year
  Sex: Female

DRUGS (1)
  1. REGLAN [Suspect]
     Active Substance: METOCLOPRAMIDE HYDROCHLORIDE
     Indication: PRODUCT USED FOR UNKNOWN INDICATION
     Dosage: UNKNOWN
     Route: 065

REACTIONS (6)
  - Palpitations [Unknown]
  - Pruritus [Unknown]
  - Confusional state [Unknown]
  - Syncope [Unknown]
  - Hypotension [Unknown]
  - Rash [Unknown]
